FAERS Safety Report 5924816-5 (Version None)
Quarter: 2008Q4

REPORT INFORMATION
  Report Type: 
  Country: None (occurrence: None)
  Receive Date: 20081017
  Receipt Date: 20081017
  Transmission Date: 20090506
  Serious: Yes (Other)
  Sender: FDA-Public Use
  Company Number: None

PATIENT
  Age: 55 Year
  Sex: Female
  Weight: 57.6068 kg

DRUGS (5)
  1. CYMBALTA [Suspect]
     Indication: FIBROMYALGIA
     Dates: start: 20070101, end: 20080822
  2. CYMBALTA [Suspect]
     Indication: PARAESTHESIA
     Dates: start: 20070101, end: 20080822
  3. HTZ [Concomitant]
  4. ULTRAN TAB [Concomitant]
  5. PROVISIN [Concomitant]

REACTIONS (2)
  - ALOPECIA [None]
  - PAIN OF SKIN [None]
